FAERS Safety Report 9626184 (Version 1)
Quarter: 2013Q4

REPORT INFORMATION
  Report Type: Report from Study
  Country: NL (occurrence: NL)
  Receive Date: 20131016
  Receipt Date: 20131016
  Transmission Date: 20140711
  Serious: Yes (Other)
  Sender: FDA-Public Use
  Company Number: PHHY2013NL115652

PATIENT
  Age: 60 Year
  Sex: Female

DRUGS (4)
  1. ZOMETA [Suspect]
     Dosage: UNK UKN, UNK
  2. ZOMETA [Suspect]
     Dosage: UNK UKN, UNK
     Dates: start: 20120425
  3. ZOMETA [Suspect]
     Dosage: UNK UKN, UNK
     Dates: start: 20130919
  4. ZOMETA [Suspect]
     Dosage: UNK UKN, UNK
     Dates: start: 20131014

REACTIONS (2)
  - Fall [Recovering/Resolving]
  - Wrist fracture [Recovering/Resolving]
